FAERS Safety Report 7310040-0 (Version None)
Quarter: 2011Q1

REPORT INFORMATION
  Report Type: 
  Country: None (occurrence: None)
  Receive Date: 20110224
  Receipt Date: 20110214
  Transmission Date: 20110831
  Serious: Yes (Hospitalization, Other)
  Sender: FDA-Public Use
  Company Number: PHHY2010JP76529

PATIENT
  Sex: Male

DRUGS (8)
  1. MEDIPEACE [Concomitant]
     Indication: ANXIETY DISORDER
     Dosage: 1 MG, QD
     Route: 048
     Dates: start: 20041213, end: 20101012
  2. EXFORGE [Suspect]
     Indication: HYPERTENSION
     Dosage: UNK
     Route: 048
     Dates: start: 20100825, end: 20101006
  3. EQUA [Suspect]
     Indication: TYPE 2 DIABETES MELLITUS
     Dosage: UNK
     Route: 048
     Dates: start: 20100721, end: 20101012
  4. UNISIA [Suspect]
     Indication: HYPERTENSION
     Dosage: UNK
     Route: 048
     Dates: start: 20101006, end: 20101012
  5. DEPAS [Concomitant]
     Dosage: 1 MG, QD
     Route: 048
     Dates: start: 20030101
  6. BETAMAC [Concomitant]
     Indication: ANXIETY DISORDER
     Dosage: 100 MG, QD
     Route: 048
     Dates: start: 20041213, end: 20101012
  7. URSO 250 [Concomitant]
     Indication: ALCOHOLIC LIVER DISEASE
     Dosage: 600 MG, QD
     Route: 048
     Dates: start: 20061204, end: 20101012
  8. AMARYL [Concomitant]
     Indication: TYPE 2 DIABETES MELLITUS
     Dosage: 6 MG, QD
     Route: 048
     Dates: start: 20030415

REACTIONS (11)
  - RHABDOMYOLYSIS [None]
  - HYPOGLYCAEMIA [None]
  - MYALGIA [None]
  - ASTHENIA [None]
  - HEPATIC FUNCTION ABNORMAL [None]
  - BLOOD SODIUM DECREASED [None]
  - FALL [None]
  - BLOOD GLUCOSE INCREASED [None]
  - PAIN [None]
  - HYPOTENSION [None]
  - GAIT DISTURBANCE [None]
